FAERS Safety Report 8255545-3 (Version None)
Quarter: 2012Q2

REPORT INFORMATION
  Report Type: 
  Country: None (occurrence: None)
  Receive Date: 20120403
  Receipt Date: 20120329
  Transmission Date: 20120825
  Serious: Yes (Other)
  Sender: FDA-Public Use
  Company Number: US-PFIZER INC-2012080982

PATIENT
  Sex: Female
  Weight: 58.05 kg

DRUGS (7)
  1. ZOLOFT [Concomitant]
     Dosage: 50 MG, UNK
  2. PREMARIN [Suspect]
     Indication: IRRITABILITY
  3. SIMVASTATIN [Concomitant]
     Dosage: 5 MG, UNK
  4. PREMARIN [Suspect]
     Indication: HORMONE REPLACEMENT THERAPY
     Dosage: 0.625 MG, 1X/DAY
     Route: 048
     Dates: start: 19741204
  5. PREMARIN [Suspect]
     Indication: OSTEOPOROSIS
  6. PREMARIN [Suspect]
     Indication: OVARIAN DISORDER
  7. NEXIUM [Concomitant]
     Indication: GASTROOESOPHAGEAL REFLUX DISEASE
     Dosage: 40 MG, 2X/DAY

REACTIONS (2)
  - BLOOD CHOLESTEROL INCREASED [None]
  - OSTEOARTHRITIS [None]
